FAERS Safety Report 18696398 (Version 1)
Quarter: 2021Q1

REPORT INFORMATION
  Report Type: Spontaneous
  Country: US (occurrence: US)
  Receive Date: 20210104
  Receipt Date: 20210104
  Transmission Date: 20210419
  Serious: No
  Sender: FDA-Public Use
  Company Number: US-ROCHE-2393603

PATIENT

DRUGS (1)
  1. ACTIVASE [Suspect]
     Active Substance: ALTEPLASE
     Indication: ISCHAEMIC STROKE
     Dosage: 100 MG VIAL
     Route: 065

REACTIONS (3)
  - Product container issue [Unknown]
  - Inappropriate schedule of product administration [Unknown]
  - Product quality issue [Unknown]
